FAERS Safety Report 23635979 (Version 1)
Quarter: 2024Q1

REPORT INFORMATION
  Report Type: Spontaneous
  Country: DE (occurrence: DE)
  Receive Date: 20240315
  Receipt Date: 20240315
  Transmission Date: 20240410
  Serious: Yes (Hospitalization, Other)
  Sender: FDA-Public Use
  Company Number: None

PATIENT
  Age: 81 Year
  Sex: Male
  Weight: 90 kg

DRUGS (12)
  1. CAPECITABINE [Suspect]
     Active Substance: CAPECITABINE
     Indication: Colorectal cancer
     Dosage: 2-0-0-2?DAILY DOSE: 8000 MILLIGRAM
     Route: 048
     Dates: start: 200909, end: 20100525
  2. AVASTIN [Suspect]
     Active Substance: BEVACIZUMAB
     Indication: Colorectal cancer
     Dosage: LAST APPLICATIONS PRIOR TO THE EVENT ON 14-APR-2010 AND ON 12-MAY-2010
     Route: 042
  3. ASPIRIN [Suspect]
     Active Substance: ASPIRIN
     Indication: Rectal cancer metastatic
     Dosage: 0-1-0-0?DAILY DOSE: 100 MILLIGRAM
     Route: 048
  4. METAMIZOL [Concomitant]
     Active Substance: METAMIZOLE SODIUM
     Dosage: IF REQUIRED
  5. MCP [Concomitant]
     Active Substance: METOCLOPRAMIDE HYDROCHLORIDE
     Dosage: IF REQUIRED
  6. RAMIPRIL [Concomitant]
     Active Substance: RAMIPRIL
  7. OXALIPLATIN [Concomitant]
     Active Substance: OXALIPLATIN
     Indication: Rectal cancer metastatic
     Dosage: LAST APPLICATIONS PRIOR TO THE EVENT ON 14-APR-2010 AND ON 12-MAY-2010
     Route: 042
  8. METFORMIN [Concomitant]
     Active Substance: METFORMIN HYDROCHLORIDE
  9. TERAZOSIN [Concomitant]
     Active Substance: TERAZOSIN HYDROCHLORIDE
  10. AMITRIPTYLINE [Concomitant]
     Active Substance: AMITRIPTYLINE
     Dosage: IF REQUIRED
  11. FENTANYL [Concomitant]
     Active Substance: FENTANYL\FENTANYL CITRATE
  12. ONDANSETRON [Concomitant]
     Active Substance: ONDANSETRON

REACTIONS (2)
  - Anastomotic haemorrhage [Recovered/Resolved]
  - Anastomotic haemorrhage [Unknown]

NARRATIVE: CASE EVENT DATE: 20100519
